FAERS Safety Report 5797689-1 (Version None)
Quarter: 2008Q2

REPORT INFORMATION
  Report Type: 
  Country: None (occurrence: None)
  Receive Date: 20080630
  Receipt Date: 20070710
  Transmission Date: 20081010
  Serious: Yes (Other)
  Sender: FDA-Public Use
  Company Number: FPI-07-038

PATIENT
  Sex: Female

DRUGS (1)
  1. TEV-TROPIN [Suspect]
     Indication: BLOOD GROWTH HORMONE

REACTIONS (5)
  - HEADACHE [None]
  - HYPERTENSION [None]
  - MALAISE [None]
  - PHARYNGOLARYNGEAL DISCOMFORT [None]
  - TACHYCARDIA [None]
